FAERS Safety Report 5517930-X (Version None)
Quarter: 2007Q4

REPORT INFORMATION
  Report Type: 
  Country: None (occurrence: None)
  Receive Date: 20071107
  Receipt Date: 20070419
  Transmission Date: 20080405
  Serious: Yes (Disabling)
  Sender: FDA-Public Use
  Company Number: WAES 0704USA04220

PATIENT
  Age: 60 Year
  Sex: Male

DRUGS (1)
  1. MEVACOR [Suspect]
     Indication: HYPERCHOLESTEROLAEMIA
     Dosage: PO
     Route: 048

REACTIONS (1)
  - MUSCULAR WEAKNESS [None]
